FAERS Safety Report 19369511 (Version 1)
Quarter: 2021Q2

REPORT INFORMATION
  Report Type: Spontaneous
  Country: US (occurrence: US)
  Receive Date: 20210603
  Receipt Date: 20210603
  Transmission Date: 20210717
  Serious: Yes (Hospitalization)
  Sender: FDA-Public Use
  Company Number: US-BRISTOL-MYERS SQUIBB COMPANY-BMS-2021-051248

PATIENT
  Age: 63 Year
  Sex: Male

DRUGS (2)
  1. YERVOY [Suspect]
     Active Substance: IPILIMUMAB
     Indication: MALIGNANT MELANOMA
     Dosage: 400 MILLIGRAM
     Route: 042
     Dates: start: 20210513
  2. OPDIVO [Suspect]
     Active Substance: NIVOLUMAB
     Indication: MALIGNANT MELANOMA
     Dosage: 135 MILLIGRAM
     Route: 042
     Dates: start: 20210513

REACTIONS (2)
  - Priapism [Unknown]
  - Off label use [Unknown]

NARRATIVE: CASE EVENT DATE: 20210521
